FAERS Safety Report 16449658 (Version 1)
Quarter: 2019Q2

REPORT INFORMATION
  Report Type: Spontaneous
  Country: US (occurrence: US)
  Receive Date: 20190619
  Receipt Date: 20190619
  Transmission Date: 20190711
  Serious: No
  Sender: FDA-Public Use
  Company Number: US-ROCHE-2283840

PATIENT

DRUGS (4)
  1. ACTEMRA [Suspect]
     Active Substance: TOCILIZUMAB
     Indication: PRODUCT USED FOR UNKNOWN INDICATION
     Route: 065
  2. ENBREL [Concomitant]
     Active Substance: ETANERCEPT
  3. REMICADE [Concomitant]
     Active Substance: INFLIXIMAB
  4. HUMIRA [Concomitant]
     Active Substance: ADALIMUMAB

REACTIONS (1)
  - Hypersensitivity [Unknown]
